FAERS Safety Report 12787729 (Version 1)
Quarter: 2016Q3

REPORT INFORMATION
  Report Type: Spontaneous
  Country: US (occurrence: US)
  Receive Date: 20160927
  Receipt Date: 20160927
  Transmission Date: 20161109
  Serious: Yes (Other)
  Sender: FDA-Public Use
  Company Number: None

PATIENT
  Age: 64 Year
  Sex: Male
  Weight: 106.65 kg

DRUGS (1)
  1. HYOSCYAMINE SULFATE 0.125MG TABL [Suspect]
     Active Substance: HYOSCYAMINE SULFATE
     Indication: IRRITABLE BOWEL SYNDROME
     Dosage: ?          QUANTITY:1 TABLET(S);?
     Route: 048
     Dates: start: 20160701, end: 20160927

REACTIONS (2)
  - Vision blurred [None]
  - Product use issue [None]

NARRATIVE: CASE EVENT DATE: 20160927
